FAERS Safety Report 4965676-9 (Version None)
Quarter: 2006Q2

REPORT INFORMATION
  Report Type: 
  Country: None (occurrence: None)
  Receive Date: 20060407
  Receipt Date: 20060327
  Transmission Date: 20061013
  Serious: Yes (Hospitalization)
  Sender: FDA-Public Use
  Company Number: IT-ABBOTT-06P-083-0329200-00

PATIENT
  Sex: Male

DRUGS (2)
  1. ERITROCINA [Suspect]
     Indication: HYPERPYREXIA
     Route: 048
     Dates: start: 20060316, end: 20060316
  2. METHYLPREDNISOLONE [Concomitant]
     Indication: DRUG USE FOR UNKNOWN INDICATION
     Route: 048
     Dates: start: 20060316, end: 20060316

REACTIONS (2)
  - HALLUCINATION, VISUAL [None]
  - INTENTION TREMOR [None]
